FAERS Safety Report 22388559 (Version 1)
Quarter: 2023Q2

REPORT INFORMATION
  Report Type: Spontaneous
  Country: US (occurrence: None)
  Receive Date: 20230529
  Receipt Date: 20230529
  Transmission Date: 20230721
  Serious: Yes (Other)
  Sender: FDA-Public Use
  Company Number: None

PATIENT
  Age: 18 Year
  Sex: Female
  Weight: 92.25 kg

DRUGS (1)
  1. OFLOXACIN OPHTHALMIC [Suspect]
     Active Substance: OFLOXACIN
     Indication: Conjunctivitis
     Dosage: FREQUENCY : AS NEEDED;?
     Route: 047
     Dates: start: 20230109, end: 20230112

REACTIONS (3)
  - Drug ineffective [None]
  - Eye irritation [None]
  - Blindness transient [None]

NARRATIVE: CASE EVENT DATE: 20230109
